FAERS Safety Report 9881480 (Version 4)
Quarter: 2014Q2

REPORT INFORMATION
  Report Type: Report from Study
  Country: DE (occurrence: DE)
  Receive Date: 20140207
  Receipt Date: 20140523
  Transmission Date: 20141212
  Serious: Yes (Hospitalization)
  Sender: FDA-Public Use
  Company Number: DE-ROCHE-1341375

PATIENT
  Age: 66 Year
  Sex: Male

DRUGS (16)
  1. OBINUTUZUMAB [Suspect]
     Indication: NON-HODGKIN^S LYMPHOMA UNSPECIFIED HISTOLOGY INDOLENT
     Dosage: MOST RECENT DOSE PRIOR TO SAE ON 09/DEC/2013, VOLUME OF LAST DOSE TAKEN: 250 ML, DOSE CONCENTRATION
     Route: 042
     Dates: start: 20130122
  2. CYCLOPHOSPHAMIDE [Suspect]
     Indication: NON-HODGKIN^S LYMPHOMA UNSPECIFIED HISTOLOGY INDOLENT
     Dosage: MOST RECENT DOSE PRIOR TO SAE ON 08/MAY/2013, DOSE: 1470 MG
     Route: 042
     Dates: start: 20130123
  3. DOXORUBICIN [Suspect]
     Indication: NON-HODGKIN^S LYMPHOMA UNSPECIFIED HISTOLOGY INDOLENT
     Dosage: MOST RECENT DOSE PRIOR TO SAE ON 08/MAY/2013, DOSE: 98 MG
     Route: 042
     Dates: start: 20130123
  4. VINCRISTINE [Suspect]
     Indication: NON-HODGKIN^S LYMPHOMA UNSPECIFIED HISTOLOGY INDOLENT
     Dosage: MOST RECENT DOSE PRIOR TO SAE ON 08/MAY/2013, DOSE: 2 MG
     Route: 050
  5. PREDNISONE [Suspect]
     Indication: NON-HODGKIN^S LYMPHOMA UNSPECIFIED HISTOLOGY INDOLENT
     Dosage: MOST RECENT DOSE PRIOR TO SAE ON 12/MAY/2013, DOSE: 100 MG
     Route: 048
     Dates: start: 20130123
  6. BISOPROLOL PLUS [Concomitant]
     Indication: HYPERTENSION
     Dosage: BISOPROLOL PLUS 5/12.5
     Route: 065
     Dates: end: 20140129
  7. LOSARTAN [Concomitant]
     Indication: HYPERTENSION
     Dosage: LOSARTAN 50 1 A
     Route: 065
     Dates: start: 20130304, end: 20140128
  8. ROXIDURA [Concomitant]
     Indication: PHARYNGITIS
     Route: 065
     Dates: start: 20140127, end: 20140128
  9. KALINOR [Concomitant]
     Indication: HYPOKALAEMIA
     Route: 065
     Dates: start: 20140129, end: 20140131
  10. NOVANOX [Concomitant]
     Indication: INSOMNIA
     Route: 065
     Dates: start: 20140130, end: 20140130
  11. AUGMENTAN [Concomitant]
     Indication: URINARY TRACT INFECTION
     Route: 065
     Dates: start: 20140128, end: 20140131
  12. ZOLPIDEM [Concomitant]
     Indication: INSOMNIA
     Route: 065
     Dates: start: 20140131, end: 20140202
  13. METFORMIN [Concomitant]
     Indication: DIABETES MELLITUS
     Route: 065
     Dates: end: 20140129
  14. METFORMIN [Concomitant]
     Route: 065
     Dates: start: 20140131
  15. LEMOCIN (GERMANY) [Concomitant]
     Indication: PHARYNGITIS
     Route: 065
     Dates: start: 20140128, end: 20140203
  16. AMPHO MORONAL [Concomitant]
     Indication: PHARYNGITIS
     Route: 065
     Dates: start: 20140128, end: 20140203

REACTIONS (1)
  - Febrile neutropenia [Recovered/Resolved]
